FAERS Safety Report 18761869 (Version 1)
Quarter: 2021Q1

REPORT INFORMATION
  Report Type: Spontaneous
  Country: US (occurrence: US)
  Receive Date: 20210119
  Receipt Date: 20210119
  Transmission Date: 20210419
  Serious: No
  Sender: FDA-Public Use
  Company Number: None

PATIENT
  Age: 48 Year
  Sex: Female
  Weight: 81.4 kg

DRUGS (5)
  1. ACETAMINOPHEN 1,000 MG [Concomitant]
     Dates: start: 20181203, end: 20201230
  2. FAMOTIDINE 20 MG [Concomitant]
     Active Substance: FAMOTIDINE
     Dates: start: 20181203, end: 20201230
  3. METHYLPREDISOLONE (SOLU?MEDROL) 125 MG [Concomitant]
     Dates: start: 20181203, end: 20201230
  4. DIPHENHYDRAMINE 50 MG [Concomitant]
     Dates: start: 20181203, end: 20201230
  5. RITUXIMAB. [Suspect]
     Active Substance: RITUXIMAB
     Indication: RHEUMATOID ARTHRITIS
     Dosage: ?          OTHER FREQUENCY:EVERY 6 MONTHS;?
     Route: 041
     Dates: start: 20181203

REACTIONS (2)
  - Dyspnoea [None]
  - Hypoglycaemia [None]

NARRATIVE: CASE EVENT DATE: 20201230
